FAERS Safety Report 23121620 (Version 1)
Quarter: 2023Q4

REPORT INFORMATION
  Report Type: Spontaneous
  Country: ID (occurrence: ID)
  Receive Date: 20231029
  Receipt Date: 20231029
  Transmission Date: 20240109
  Serious: Yes (Hospitalization)
  Sender: FDA-Public Use
  Company Number: ID-STRIDES ARCOLAB LIMITED-2023SP016009

PATIENT
  Age: 33 Year
  Sex: Male

DRUGS (10)
  1. ACYCLOVIR [Suspect]
     Active Substance: ACYCLOVIR
     Indication: Herpes zoster
     Dosage: 800 MILLIGRAM, EVERY 5 HRS
     Route: 048
  2. DICLOFENAC [Concomitant]
     Active Substance: DICLOFENAC
     Indication: Pain
     Dosage: 50 MILLIGRAM, EVERY 12 HRS
     Route: 048
  3. VITAMIN B COMPLEX NOS [Concomitant]
     Active Substance: CYANOCOBALAMIN\PYRIDOXINE HYDROCHLORIDE\RIBOFLAVIN\SODIUM PANTOTHENATE\THIAMINE HYDROCHLORIDE\VITAMI
     Indication: Vitamin supplementation
     Dosage: UNK, EVERY 24 HOURS
     Route: 042
  4. DEXAMETHASONE [Concomitant]
     Active Substance: DEXAMETHASONE
     Indication: Product used for unknown indication
     Dosage: UNK, EVERY 8 HRS (1 AMPULE)
     Route: 042
  5. ONDANSETRON [Concomitant]
     Active Substance: ONDANSETRON
     Indication: Product used for unknown indication
     Dosage: UNK, EVERY 8 HRS (1 AMPULE)
     Route: 042
  6. DIPHENHYDRAMINE [Concomitant]
     Active Substance: DIPHENHYDRAMINE
     Indication: Product used for unknown indication
     Dosage: 100 MILLIGRAM, EVERY 12 HRS
     Route: 042
  7. POTASSIUM [Concomitant]
     Active Substance: POTASSIUM
     Indication: Mineral supplementation
     Dosage: UNK, EVERY 24 HOURS (RECEIVED 1 TABLET)
     Route: 048
  8. RANITIDINE [Concomitant]
     Active Substance: RANITIDINE
     Indication: Product used for unknown indication
     Dosage: 100 MILLIGRAM, EVERY 12 HRS
     Route: 042
  9. SODIUM CHLORIDE [Concomitant]
     Active Substance: SODIUM CHLORIDE
     Indication: Wound treatment
     Dosage: UNK
     Route: 061
  10. FUSIDIC ACID [Concomitant]
     Active Substance: FUSIDIC ACID
     Indication: Antibiotic prophylaxis
     Dosage: UNK
     Route: 061

REACTIONS (2)
  - Neurotoxicity [Recovered/Resolved]
  - Seizure [Recovered/Resolved]
